FAERS Safety Report 11542745 (Version 1)
Quarter: 2015Q3

REPORT INFORMATION
  Report Type: Spontaneous
  Country: IT (occurrence: IT)
  Receive Date: 20150923
  Receipt Date: 20150923
  Transmission Date: 20151125
  Serious: Yes (Hospitalization)
  Sender: FDA-Public Use
  Company Number: IT-BAYER-2015-424410

PATIENT
  Age: 84 Year
  Sex: Male

DRUGS (2)
  1. CARDIOASPIRIN [Suspect]
     Active Substance: ASPIRIN
     Indication: THROMBOSIS PROPHYLAXIS
     Dosage: DAILY DOSE 100MG
     Route: 048
     Dates: start: 20150101, end: 20150723
  2. TRIATEC [Concomitant]
     Active Substance: RAMIPRIL
     Route: 048

REACTIONS (4)
  - Cerebellar haemorrhage [Unknown]
  - Syncope [Unknown]
  - Confusional state [Unknown]
  - Vomiting [Unknown]

NARRATIVE: CASE EVENT DATE: 20150723
